APPROVED DRUG PRODUCT: MIDAZOLAM HYDROCHLORIDE PRESERVATIVE FREE
Active Ingredient: MIDAZOLAM HYDROCHLORIDE
Strength: EQ 1MG BASE/ML
Dosage Form/Route: INJECTABLE;INJECTION
Application: A075857 | Product #001 | TE Code: AP
Applicant: HOSPIRA INC
Approved: Jul 22, 2002 | RLD: No | RS: Yes | Type: RX